FAERS Safety Report 15396481 (Version 1)
Quarter: 2018Q3

REPORT INFORMATION
  Report Type: Report from Study
  Country: CA (occurrence: CA)
  Receive Date: 20180918
  Receipt Date: 20180918
  Transmission Date: 20181010
  Serious: Yes (Hospitalization, Other)
  Sender: FDA-Public Use
  Company Number: CA-BRISTOL-MYERS SQUIBB COMPANY-BMS-2018-083194

PATIENT
  Age: 75 Year
  Sex: Male

DRUGS (1)
  1. ABATACEPT [Suspect]
     Active Substance: ABATACEPT
     Indication: PRODUCT USED FOR UNKNOWN INDICATION
     Dosage: 125 MG, QWK
     Route: 058
     Dates: start: 20140402, end: 20180708

REACTIONS (13)
  - Osteomyelitis [Unknown]
  - Dyspnoea [Unknown]
  - Lung disorder [Unknown]
  - Wound [Unknown]
  - Humerus fracture [Unknown]
  - Pain [Unknown]
  - General physical health deterioration [Unknown]
  - Anaemia [Unknown]
  - Fatigue [Unknown]
  - Rheumatoid factor increased [Unknown]
  - Productive cough [Unknown]
  - Chest discomfort [Unknown]
  - Stenosis [Unknown]

NARRATIVE: CASE EVENT DATE: 201802
